FAERS Safety Report 8070062-1 (Version None)
Quarter: 2012Q1

REPORT INFORMATION
  Report Type: 
  Country: None (occurrence: None)
  Receive Date: 20120125
  Receipt Date: 20120120
  Transmission Date: 20120608
  Serious: Yes (Congenital Anomaly, Other)
  Sender: FDA-Public Use
  Company Number: US-PFIZER INC-2011289829

PATIENT
  Sex: Female
  Weight: 3 kg

DRUGS (10)
  1. MACROBID [Concomitant]
     Dosage: 100 MG, 2X/DAY
     Route: 064
     Dates: start: 20100718
  2. MULTI-VITAMINS [Concomitant]
     Dosage: UNK
     Route: 064
     Dates: start: 20100909
  3. MAGNESIUM HYDROXIDE TAB [Concomitant]
     Dosage: 30 MG, UNK
     Route: 064
     Dates: start: 20100909
  4. ZOLOFT [Suspect]
     Indication: ANXIETY
     Dosage: 50 MG, 1X/DAY
     Route: 064
     Dates: start: 20051109
  5. ZOLOFT [Suspect]
     Dosage: 2.5 ML, 2X/DAY
     Route: 064
     Dates: start: 20100718
  6. SERTRALINE HYDROCHLORIDE [Suspect]
     Dosage: 50 MG HALF TABLET FOR 7 DAYS, THEN ONE TABLET A DAY
     Route: 064
     Dates: start: 20100604
  7. CALCIUM CARBONATE [Concomitant]
     Dosage: UNK
     Route: 064
     Dates: start: 20100909
  8. ZANTAC [Concomitant]
     Dosage: 150 MG, UNK
     Route: 064
     Dates: start: 20100909
  9. ZOLOFT [Suspect]
     Dosage: 100 MG, 1X/DAY
     Route: 064
     Dates: start: 20100819
  10. ALUMINIUM /MAGNESIUM/SIMETICONE/ [Concomitant]
     Dosage: UNK
     Route: 064
     Dates: start: 20100909

REACTIONS (13)
  - MATERNAL EXPOSURE TIMING UNSPECIFIED [None]
  - RIGHT ATRIAL DILATATION [None]
  - RIGHT VENTRICULAR HYPERTROPHY [None]
  - WEIGHT DECREASE NEONATAL [None]
  - MATERNAL DRUGS AFFECTING FOETUS [None]
  - DOUBLE OUTLET RIGHT VENTRICLE [None]
  - CARDIAC ANEURYSM [None]
  - PATENT DUCTUS ARTERIOSUS [None]
  - VENTRICULAR SEPTAL DEFECT [None]
  - ATRIAL SEPTAL DEFECT [None]
  - JAUNDICE NEONATAL [None]
  - PULMONARY VALVE DISEASE [None]
  - TRANSPOSITION OF THE GREAT VESSELS [None]
